FAERS Safety Report 20604833 (Version 1)
Quarter: 2022Q1

REPORT INFORMATION
  Report Type: Spontaneous
  Country: IT (occurrence: IT)
  Receive Date: 20220317
  Receipt Date: 20220317
  Transmission Date: 20220423
  Serious: Yes (Other)
  Sender: FDA-Public Use
  Company Number: IT-SUN PHARMACEUTICAL INDUSTRIES LTD-2022RR-330044

PATIENT
  Age: 68 Year
  Sex: Female
  Weight: 98 kg

DRUGS (5)
  1. TILDRAKIZUMAB [Suspect]
     Active Substance: TILDRAKIZUMAB
     Indication: Psoriasis
     Dosage: 1 DOSAGE FORM, 1 TOTAL
     Route: 058
     Dates: start: 20220218, end: 20220218
  2. ATORVASTATIN [Concomitant]
     Active Substance: ATORVASTATIN
     Indication: Product used for unknown indication
     Dosage: UNK
     Route: 065
  3. NODIGAP [Concomitant]
     Indication: Product used for unknown indication
     Dosage: UNK
     Route: 065
  4. LACIREX 6 MG [Concomitant]
     Indication: Product used for unknown indication
     Dosage: UNK
     Route: 065
  5. OLPREZIDE 40 MG/25 MG [Concomitant]
     Indication: Product used for unknown indication
     Dosage: UNK
     Route: 065

REACTIONS (3)
  - Erysipelas [Not Recovered/Not Resolved]
  - Skin lesion [Not Recovered/Not Resolved]
  - Hyperpyrexia [Not Recovered/Not Resolved]

NARRATIVE: CASE EVENT DATE: 20220220
